FAERS Safety Report 21548881 (Version 1)
Quarter: 2022Q4

REPORT INFORMATION
  Report Type: Spontaneous
  Country: US (occurrence: US)
  Receive Date: 20221103
  Receipt Date: 20221103
  Transmission Date: 20230113
  Serious: No
  Sender: FDA-Public Use
  Company Number: US-PFIZER INC-PV202200095708

PATIENT
  Sex: Female
  Weight: 61.224 kg

DRUGS (2)
  1. IBRANCE [Suspect]
     Active Substance: PALBOCICLIB
     Dosage: UNK
  2. LENVIMA [Suspect]
     Active Substance: LENVATINIB
     Indication: Connective tissue neoplasm
     Dosage: 24MG(2-10MG/1-4MG)
     Route: 048

REACTIONS (1)
  - Illness [Unknown]
